FAERS Safety Report 5447148-0 (Version None)
Quarter: 2007Q3

REPORT INFORMATION
  Report Type: 
  Country: None (occurrence: None)
  Receive Date: 20070910
  Receipt Date: 20070903
  Transmission Date: 20080115
  Serious: Yes (Other)
  Sender: FDA-Public Use
  Company Number: PHBS2007IE14636

PATIENT
  Age: 62 Year
  Sex: Male

DRUGS (5)
  1. ZOMETA [Suspect]
     Indication: PROSTATE CANCER METASTATIC
     Dosage: 4 MG/MONTHLY
     Route: 042
     Dates: start: 20060301, end: 20070601
  2. DOCETAXEL [Concomitant]
  3. PREDNISOLONE [Concomitant]
  4. LANSOPRAZOLE [Concomitant]
  5. ANTIEMETICS [Concomitant]

REACTIONS (1)
  - OSTEONECROSIS [None]
